FAERS Safety Report 14556851 (Version 2)
Quarter: 2018Q2

REPORT INFORMATION
  Report Type: Spontaneous
  Country: NZ (occurrence: NZ)
  Receive Date: 20180221
  Receipt Date: 20180413
  Transmission Date: 20180711
  Serious: Yes (Hospitalization, Other)
  Sender: FDA-Public Use
  Company Number: NZ-ASTRAZENECA-2018SE20613

PATIENT
  Age: 42 Year
  Sex: Male
  Weight: 79.1 kg

DRUGS (3)
  1. OMEPRAZOLE. [Suspect]
     Active Substance: OMEPRAZOLE
     Indication: GASTROOESOPHAGEAL REFLUX DISEASE
     Route: 048
  2. CILAZAPRIL [Concomitant]
     Active Substance: CILAZAPRIL ANHYDROUS
     Indication: BLOOD PRESSURE ABNORMAL
  3. GENOTROPIN [Concomitant]
     Active Substance: SOMATROPIN
     Indication: GROWTH HORMONE DEFICIENCY

REACTIONS (13)
  - Chronic kidney disease [Unknown]
  - Gastrooesophageal reflux disease [Unknown]
  - Fatigue [Recovered/Resolved]
  - Proteinuria [Unknown]
  - Hypertension [Unknown]
  - Growth hormone deficiency [Unknown]
  - Decreased appetite [Not Recovered/Not Resolved]
  - Hand fracture [Unknown]
  - Anaemia [Not Recovered/Not Resolved]
  - Gastritis [Unknown]
  - Glomerulonephritis chronic [Unknown]
  - Urine abnormality [Unknown]
  - Nocturia [Unknown]

NARRATIVE: CASE EVENT DATE: 201703
